FAERS Safety Report 5322063-1 (Version None)
Quarter: 2007Q2

REPORT INFORMATION
  Report Type: 
  Country: None (occurrence: None)
  Receive Date: 20070507
  Receipt Date: 20070117
  Transmission Date: 20071010
  Serious: Yes (Hospitalization)
  Sender: FDA-Public Use
  Company Number: 6029212

PATIENT
  Age: 51 Year
  Sex: Female

DRUGS (7)
  1. LEVOTHYROXINE SODIUM [Suspect]
     Indication: THYROIDECTOMY
     Dosage: 150 MCG (150 MCG, 1 D)
     Dates: start: 20020101
  2. LODOZ (TABLET) (HYDROCHLOROTHIAZIDE, BISOPROLOL FUMARATE) [Suspect]
     Indication: DRUG USE FOR UNKNOWN INDICATION
     Dosage: 1 DOSAGE FORMS (1 DOSAGE FORMS, 1 D)
     Route: 048
  3. AMARYL [Suspect]
     Indication: DIABETES MELLITUS
     Dosage: 6 MG (6 MG, 1 D)
     Route: 048
  4. ATORVASTATIN CALCIUM [Suspect]
     Indication: HYPERCHOLESTEROLAEMIA
     Dosage: 10 MG (10 MG, 1 D)
     Route: 048
  5. ADEPAL (TABLET) (ETHINYLESTRADIOL, LEVONORGESTREL) [Suspect]
     Indication: DRUG USE FOR UNKNOWN INDICATION
     Dosage: 1 DOSAGE FORMS (1 DOSAGE FORMS, 1 IN 1 D)
     Route: 048
     Dates: end: 20050521
  6. LANTUS [Suspect]
     Indication: DIABETES MELLITUS
     Dosage: 76 IU (76 IU, 1 IN 1 D)
     Route: 042
  7. COTAREG (TABLET) (HYDROCHLOROTHIAZIDE, VALSARTAN) [Suspect]
     Indication: DRUG USE FOR UNKNOWN INDICATION
     Dosage: 1 DOSAGE FORMS (1 DOSAGE FORMS, 1 D)
     Route: 048

REACTIONS (2)
  - CEREBRAL DISORDER [None]
  - CEREBROVASCULAR ACCIDENT [None]
